FAERS Safety Report 22282456 (Version 1)
Quarter: 2023Q2

REPORT INFORMATION
  Report Type: Spontaneous
  Country: GB (occurrence: GB)
  Receive Date: 20230504
  Receipt Date: 20230504
  Transmission Date: 20230722
  Serious: Yes (Other)
  Sender: FDA-Public Use
  Company Number: GB-AMGEN-GBRSP2023074566

PATIENT

DRUGS (1)
  1. VECTIBIX [Suspect]
     Active Substance: PANITUMUMAB
     Indication: Product used for unknown indication
     Dosage: UNK
     Route: 065

REACTIONS (14)
  - Neuropathy peripheral [Unknown]
  - Disease progression [Unknown]
  - Cardiac failure [Unknown]
  - Sepsis [Unknown]
  - Rash [Unknown]
  - Xerosis [Unknown]
  - Hypophagia [Unknown]
  - Therapy partial responder [Unknown]
  - Skin fissures [Unknown]
  - Mucosal inflammation [Unknown]
  - Fatigue [Unknown]
  - Decreased appetite [Unknown]
  - Nausea [Unknown]
  - Vomiting [Unknown]
